FAERS Safety Report 13277124 (Version 1)
Quarter: 2017Q1

REPORT INFORMATION
  Report Type: Spontaneous
  Country: GR (occurrence: GR)
  Receive Date: 20170228
  Receipt Date: 20170228
  Transmission Date: 20170428
  Serious: Yes (Other)
  Sender: FDA-Public Use
  Company Number: GR-PFIZER INC-2017080594

PATIENT
  Age: 86 Year
  Sex: Female

DRUGS (1)
  1. PREGABALIN. [Suspect]
     Active Substance: PREGABALIN
     Dosage: UNK

REACTIONS (5)
  - Colonic pseudo-obstruction [Unknown]
  - Adenocarcinoma of colon [Unknown]
  - Abdominal pain [Unknown]
  - Ileus [Unknown]
  - Abdominal distension [Unknown]
